FAERS Safety Report 11852020 (Version 1)
Quarter: 2015Q4

REPORT INFORMATION
  Report Type: Spontaneous
  Country: US (occurrence: US)
  Receive Date: 20151218
  Receipt Date: 20151218
  Transmission Date: 20160305
  Serious: No
  Sender: FDA-Public Use
  Company Number: US-UCBSA-2015001167

PATIENT

DRUGS (4)
  1. OMEPRAZOLE. [Suspect]
     Active Substance: OMEPRAZOLE
     Indication: PRODUCT USED FOR UNKNOWN INDICATION
  2. BUDESONIDE. [Concomitant]
     Active Substance: BUDESONIDE
  3. REMICADE [Concomitant]
     Active Substance: INFLIXIMAB
  4. LIALDA [Concomitant]
     Active Substance: MESALAMINE

REACTIONS (2)
  - Weight decreased [Unknown]
  - Drug ineffective [Unknown]
